FAERS Safety Report 5862706-7 (Version None)
Quarter: 2008Q3

REPORT INFORMATION
  Report Type: 
  Country: None (occurrence: None)
  Receive Date: 20080828
  Receipt Date: 20080822
  Transmission Date: 20090109
  Serious: Yes (Death, Other)
  Sender: FDA-Public Use
  Company Number: US-BAYER-US-2007-013224

PATIENT
  Age: 60 Year
  Sex: Female

DRUGS (7)
  1. MAGNEVIST [Suspect]
     Indication: ANGIOGRAM
     Dosage: UNIT DOSE: 50 ML
     Route: 042
     Dates: start: 20050818, end: 20050818
  2. MAGNEVIST [Suspect]
     Dosage: UNIT DOSE: 20 ML
     Route: 042
     Dates: start: 20060101, end: 20060101
  3. MAGNEVIST [Suspect]
     Dosage: UNIT DOSE: 20 ML
     Route: 042
     Dates: start: 20060102, end: 20060102
  4. MAGNEVIST [Suspect]
     Dosage: UNIT DOSE: 20 ML
     Route: 042
     Dates: start: 20060416, end: 20060416
  5. MAGNEVIST [Suspect]
     Dosage: UNIT DOSE: 20 ML
     Route: 042
     Dates: start: 20060909, end: 20060909
  6. MAGNEVIST [Suspect]
     Dosage: UNIT DOSE: 40 ML
     Route: 042
     Dates: start: 20060919, end: 20060919
  7. MAGNEVIST [Suspect]
     Dosage: UNIT DOSE: 20 ML
     Route: 042
     Dates: start: 20061021, end: 20061021

REACTIONS (2)
  - NEPHROGENIC SYSTEMIC FIBROSIS [None]
  - SERUM FERRITIN INCREASED [None]
